FAERS Safety Report 5268541-5 (Version None)
Quarter: 2007Q1

REPORT INFORMATION
  Report Type: 
  Country: None (occurrence: None)
  Receive Date: 20070313
  Receipt Date: 20070301
  Transmission Date: 20070707
  Serious: Yes (Other)
  Sender: FDA-Public Use
  Company Number: 2007BI004241

PATIENT
  Age: 52 Year
  Sex: Female

DRUGS (2)
  1. NATALIZUMAB [Suspect]
     Dosage: IV
     Route: 042
     Dates: start: 20050108
  2. NATALIZUMAB [Suspect]
     Indication: MULTIPLE SCLEROSIS
     Dosage: 300 MG;QM;IV
     Route: 042
     Dates: start: 20070105

REACTIONS (1)
  - CONVULSION [None]
